FAERS Safety Report 14813034 (Version 1)
Quarter: 2018Q2

REPORT INFORMATION
  Report Type: Spontaneous
  Country: FR (occurrence: FR)
  Receive Date: 20180426
  Receipt Date: 20180426
  Transmission Date: 20180711
  Serious: Yes (Other)
  Sender: FDA-Public Use
  Company Number: FR-MERCK KGAA-2046543

PATIENT
  Age: 33 Year
  Sex: Male

DRUGS (1)
  1. NOVOTHYROX [Suspect]
     Active Substance: LEVOTHYROXINE SODIUM
     Indication: POST PROCEDURAL HYPOTHYROIDISM
     Dates: start: 20170715

REACTIONS (18)
  - Insomnia [None]
  - General physical health deterioration [None]
  - Fatigue [None]
  - Disturbance in attention [None]
  - Diarrhoea [None]
  - Palpitations [None]
  - Mobility decreased [None]
  - Asocial behaviour [None]
  - Hyperhidrosis [None]
  - Gastrointestinal disorder [None]
  - Headache [None]
  - Hot flush [None]
  - Muscle spasms [None]
  - Memory impairment [None]
  - Faeces soft [None]
  - Loss of personal independence in daily activities [None]
  - Irritability [None]
  - Impaired work ability [None]

NARRATIVE: CASE EVENT DATE: 20170820
